FAERS Safety Report 5981634-X (Version None)
Quarter: 2008Q4

REPORT INFORMATION
  Report Type: 
  Country: None (occurrence: None)
  Receive Date: 20081205
  Receipt Date: 20081107
  Transmission Date: 20090506
  Serious: No
  Sender: FDA-Public Use
  Company Number: US-JNJFOC-20081102384

PATIENT
  Age: 35 Year
  Sex: Male

DRUGS (2)
  1. INVEGA [Suspect]
     Indication: SCHIZOPHRENIA
     Route: 048
  2. COGENTIN [Concomitant]

REACTIONS (3)
  - OEDEMA MOUTH [None]
  - PHARYNGEAL OEDEMA [None]
  - SWELLING FACE [None]
